FAERS Safety Report 4314282-8 (Version None)
Quarter: 2004Q1

REPORT INFORMATION
  Report Type: 
  Country: None (occurrence: None)
  Receive Date: 20040309
  Receipt Date: 20040309
  Transmission Date: 20041129
  Serious: Yes (Life-Threatening, Hospitalization)
  Sender: FDA-Public Use
  Company Number: None

PATIENT
  Age: 49 Year
  Sex: Male
  Weight: 83.5 kg

DRUGS (10)
  1. FLUCONAZOLE [Suspect]
     Indication: OESOPHAGEAL CANDIDIASIS
     Dosage: 100 MG QD PO
     Route: 048
     Dates: start: 20030807, end: 20030813
  2. LASIX [Concomitant]
  3. PREVACID [Concomitant]
  4. SPIRONOLACTONE [Concomitant]
  5. ATROVENT [Concomitant]
  6. TRAZODONE HCL [Concomitant]
  7. TRAMADOL [Concomitant]
  8. REMERON [Concomitant]
  9. PROZAC [Concomitant]
  10. ALLOPURINOL [Concomitant]

REACTIONS (11)
  - DRY SKIN [None]
  - DYSPNOEA [None]
  - ERYTHEMA [None]
  - HOARSENESS [None]
  - PAIN [None]
  - RASH [None]
  - SKIN DESQUAMATION [None]
  - SKIN ULCER [None]
  - STEVENS-JOHNSON SYNDROME [None]
  - STRIDOR [None]
  - TOXIC EPIDERMAL NECROLYSIS [None]
